FAERS Safety Report 4861016-4 (Version None)
Quarter: 2005Q4

REPORT INFORMATION
  Report Type: 
  Country: None (occurrence: None)
  Receive Date: 20051220
  Receipt Date: 20051020
  Transmission Date: 20060501
  Serious: No
  Sender: FDA-Public Use
  Company Number: US-GLAXOSMITHKLINE-A0578969A

PATIENT
  Age: 25 Year
  Sex: Male

DRUGS (1)
  1. TAGAMET [Suspect]
     Route: 048
     Dates: start: 19800101

REACTIONS (1)
  - SWELLING FACE [None]
